FAERS Safety Report 9133602 (Version 1)
Quarter: 2013Q1

REPORT INFORMATION
  Report Type: Spontaneous
  Country: FR (occurrence: FR)
  Receive Date: 20130301
  Receipt Date: 20130301
  Transmission Date: 20140127
  Serious: Yes (Other)
  Sender: FDA-Public Use
  Company Number: FR-B.I. PHARMACEUTICALS,INC./RIDGEFIELD-2013-FF-00598FF

PATIENT
  Age: 88 Year
  Sex: Male

DRUGS (6)
  1. PRADAXA [Suspect]
     Indication: ATRIAL FIBRILLATION
     Dosage: 220 MG
     Route: 048
     Dates: end: 20130221
  2. FLECAINE [Concomitant]
  3. TAHOR [Concomitant]
  4. NOVONORM [Concomitant]
  5. SIMVASTATINE [Concomitant]
  6. DEROXAT [Concomitant]

REACTIONS (1)
  - Sciatica [Not Recovered/Not Resolved]
